FAERS Safety Report 14161723 (Version 1)
Quarter: 2017Q4

REPORT INFORMATION
  Report Type: Spontaneous
  Country: US (occurrence: None)
  Receive Date: 20171105
  Receipt Date: 20171105
  Transmission Date: 20180321
  Serious: No
  Sender: FDA-Public Use
  Company Number: None

PATIENT
  Age: 48 Year
  Sex: Female
  Weight: 65.77 kg

DRUGS (6)
  1. CALCIUM/MAGNESIUM [Concomitant]
     Active Substance: CALCIUM\MAGNESIUM
  2. IBUPROFEN. [Concomitant]
     Active Substance: IBUPROFEN
  3. NAC [Concomitant]
  4. CBD OIL [Concomitant]
     Active Substance: CANNABIDIOL
  5. MRI WITH GADOLINIUM [Suspect]
     Active Substance: GADOLINIUM
  6. THYROID USP [Concomitant]

REACTIONS (3)
  - Pain [None]
  - Arthropathy [None]
  - Musculoskeletal disorder [None]

NARRATIVE: CASE EVENT DATE: 20170914
